FAERS Safety Report 7275258-4 (Version None)
Quarter: 2011Q1

REPORT INFORMATION
  Report Type: 
  Country: None (occurrence: None)
  Receive Date: 20110204
  Receipt Date: 20110131
  Transmission Date: 20110831
  Serious: Yes (Death, Hospitalization)
  Sender: FDA-Public Use
  Company Number: PHHY2010US86123

PATIENT
  Sex: Male
  Weight: 76.19 kg

DRUGS (1)
  1. EXJADE [Suspect]
     Indication: MYELODYSPLASTIC SYNDROME
     Dosage: 1500 MG, DAILY
     Route: 048
     Dates: start: 20090813

REACTIONS (10)
  - OEDEMA PERIPHERAL [None]
  - DIARRHOEA HAEMORRHAGIC [None]
  - PROCTITIS INFECTIOUS [None]
  - HEPATIC NEOPLASM [None]
  - DEATH [None]
  - ARTHRALGIA [None]
  - COAGULOPATHY [None]
  - LIVER DISORDER [None]
  - HAEMOGLOBIN DECREASED [None]
  - PLATELET COUNT DECREASED [None]
